FAERS Safety Report 19970167 (Version 1)
Quarter: 2021Q4

REPORT INFORMATION
  Report Type: Spontaneous
  Country: HU (occurrence: HU)
  Receive Date: 20211019
  Receipt Date: 20211019
  Transmission Date: 20220303
  Serious: Yes (Other)
  Sender: FDA-Public Use
  Company Number: HU-UCBSA-2021042705

PATIENT
  Age: 36 Year
  Sex: Female

DRUGS (4)
  1. LACOSAMIDE [Suspect]
     Active Substance: LACOSAMIDE
     Indication: Epilepsy
     Dosage: 450 MILLIGRAMS PER DAY
  2. ZONISAMIDE [Concomitant]
     Active Substance: ZONISAMIDE
     Indication: Epilepsy
     Dosage: 500 MILLIGRAMS PER DAY
  3. CLOBAZAM [Concomitant]
     Active Substance: CLOBAZAM
     Indication: Epilepsy
     Dosage: 10 MILLIGRAMS PER DAY
  4. FOLIC ACID [Concomitant]
     Active Substance: FOLIC ACID
     Indication: Vitamin supplementation
     Dosage: 3 MILLIGRAMS DAILY

REACTIONS (3)
  - Premature delivery [Unknown]
  - Maternal exposure before pregnancy [Unknown]
  - Maternal exposure during pregnancy [Unknown]

NARRATIVE: CASE EVENT DATE: 20170101
